FAERS Safety Report 18344546 (Version 19)
Quarter: 2021Q4

REPORT INFORMATION
  Report Type: Report from Study
  Country: CN (occurrence: CN)
  Receive Date: 20201005
  Receipt Date: 20211004
  Transmission Date: 20220303
  Serious: Yes (Death, Hospitalization)
  Sender: FDA-Public Use
  Company Number: CN-EISAI MEDICAL RESEARCH-EC-2020-081574

PATIENT
  Age: 60 Year
  Sex: Female
  Weight: 51 kg

DRUGS (19)
  1. LENVATINIB [Suspect]
     Active Substance: LENVATINIB
     Indication: Non-small cell lung cancer metastatic
     Route: 048
     Dates: start: 20200826, end: 20200923
  2. LENVATINIB [Suspect]
     Active Substance: LENVATINIB
     Indication: Non-small cell lung cancer metastatic
     Route: 048
     Dates: start: 20200826, end: 20200923
  3. LENVATINIB [Suspect]
     Active Substance: LENVATINIB
     Route: 048
     Dates: start: 20200826, end: 20200923
  4. LENVATINIB [Suspect]
     Active Substance: LENVATINIB
     Indication: Non-small cell lung cancer metastatic
     Route: 048
     Dates: start: 20200826, end: 20200923
  5. PEMBROLIZUMAB [Suspect]
     Active Substance: PEMBROLIZUMAB
     Indication: Non-small cell lung cancer metastatic
     Route: 041
     Dates: start: 20200826, end: 20200826
  6. PEMBROLIZUMAB [Suspect]
     Active Substance: PEMBROLIZUMAB
     Route: 041
     Dates: start: 20200916, end: 20200916
  7. PEMETREXED [Suspect]
     Active Substance: PEMETREXED
     Indication: Non-small cell lung cancer metastatic
     Route: 041
     Dates: start: 20200826, end: 20200826
  8. PEMETREXED [Suspect]
     Active Substance: PEMETREXED
     Route: 041
     Dates: start: 20200916, end: 20200916
  9. CARBOPLATIN [Suspect]
     Active Substance: CARBOPLATIN
     Indication: Non-small cell lung cancer metastatic
     Dosage: AREA UNDER THE CURVE (AUC) 5MG/ML/MIN
     Route: 041
     Dates: start: 20200826, end: 20200826
  10. CARBOPLATIN [Suspect]
     Active Substance: CARBOPLATIN
     Dosage: AREA UNDER THE CURVE (AUC) 5MG/ML/MIN
     Route: 041
     Dates: start: 20200916, end: 20200916
  11. FOLIC ACID [Concomitant]
     Active Substance: FOLIC ACID
     Dates: start: 20200824, end: 20201104
  12. LEUCOGEN [Concomitant]
     Active Substance: LEUCOGEN
     Dates: start: 20200827, end: 20201002
  13. YI GAN LING PIAN [Concomitant]
     Dates: start: 20200903, end: 20200917
  14. DEXAMETHASONE ACETATE [Concomitant]
     Active Substance: DEXAMETHASONE ACETATE
     Dates: start: 20200915, end: 20200917
  15. LANSOPRAZOLE [Concomitant]
     Active Substance: LANSOPRAZOLE
     Dates: start: 20200915, end: 20200921
  16. LANSOPRAZOLE [Concomitant]
     Active Substance: LANSOPRAZOLE
     Route: 042
     Dates: start: 20200916, end: 20200916
  17. TROPISETRON HYDROCHLORIDE [Concomitant]
     Active Substance: TROPISETRON HYDROCHLORIDE
     Route: 042
     Dates: start: 20200916, end: 20200916
  18. BETAMETHASONE SODIUM PHOSPHATE [Concomitant]
     Active Substance: BETAMETHASONE SODIUM PHOSPHATE
     Route: 042
     Dates: start: 20200916, end: 20200916
  19. ONDANSETRON HYDROCHLORIDE [Concomitant]
     Active Substance: ONDANSETRON HYDROCHLORIDE
     Dates: start: 20200916, end: 20200922

REACTIONS (2)
  - Hepatic failure [Fatal]
  - Blood creatinine increased [Recovered/Resolved]

NARRATIVE: CASE EVENT DATE: 20200923
